FAERS Safety Report 9941930 (Version 2)
Quarter: 2014Q1

REPORT INFORMATION
  Report Type: Report from Study
  Country: US (occurrence: US)
  Receive Date: 20140303
  Receipt Date: 20140303
  Transmission Date: 20141002
  Serious: Yes (Hospitalization)
  Sender: FDA-Public Use
  Company Number: US-ABBVIE-13P-163-1036173-00

PATIENT
  Age: 63 Year
  Sex: Female
  Weight: 59.47 kg

DRUGS (1)
  1. HUMIRA [Suspect]
     Indication: PSORIASIS
     Route: 058
     Dates: start: 2007, end: 201212

REACTIONS (6)
  - Sinusitis [Recovering/Resolving]
  - Bronchitis [Recovering/Resolving]
  - Influenza like illness [Recovering/Resolving]
  - Cough [Recovered/Resolved]
  - Fungal infection [Not Recovered/Not Resolved]
  - Bronchitis [Recovered/Resolved]
